FAERS Safety Report 25945696 (Version 3)
Quarter: 2025Q4

REPORT INFORMATION
  Report Type: Spontaneous
  Country: EU (occurrence: EU)
  Receive Date: 20251021
  Receipt Date: 20251210
  Transmission Date: 20260118
  Serious: Yes (Other)
  Sender: ORGANON
  Company Number: EU-ORGANON-O2510FRA001879

PATIENT
  Sex: Female
  Weight: 65 kg

DRUGS (8)
  1. FOLLITROPIN BETA [Suspect]
     Active Substance: FOLLITROPIN BETA
     Indication: Ovarian hyperstimulation syndrome
     Dosage: UNK (INJECTABLE SOLUTION)
  2. FOLLITROPIN BETA [Suspect]
     Active Substance: FOLLITROPIN BETA
     Indication: In vitro fertilisation
  3. FOLLITROPIN BETA [Suspect]
     Active Substance: FOLLITROPIN BETA
     Indication: In vitro fertilisation
  4. UTROGESTAN [Suspect]
     Active Substance: PROGESTERONE
     Indication: In vitro fertilisation
     Dosage: UNK
     Route: 065
  5. UTROGESTAN [Suspect]
     Active Substance: PROGESTERONE
     Indication: In vitro fertilisation
  6. DESOGESTREL [Suspect]
     Active Substance: DESOGESTREL
     Indication: Contraception
     Dosage: UNK
  7. CHORIONIC GONADOTROPHIN [Suspect]
     Active Substance: CHORIOGONADOTROPIN ALFA
     Indication: In vitro fertilisation
     Dosage: UNK
     Route: 065
  8. CHORIONIC GONADOTROPHIN [Suspect]
     Active Substance: CHORIOGONADOTROPIN ALFA
     Indication: In vitro fertilisation

REACTIONS (5)
  - Breast cancer female [Unknown]
  - Graves^ disease [Recovered/Resolved]
  - Heavy menstrual bleeding [Recovered/Resolved]
  - Weight increased [Unknown]
  - Emotional distress [Unknown]

NARRATIVE: CASE EVENT DATE: 20160101
